FAERS Safety Report 9187579 (Version 1)
Quarter: 2013Q1

REPORT INFORMATION
  Report Type: Spontaneous
  Country: US (occurrence: US)
  Receive Date: 20130325
  Receipt Date: 20130325
  Transmission Date: 20140127
  Serious: Yes (Hospitalization, Disabling, Other)
  Sender: FDA-Public Use
  Company Number: US-PFIZER INC-2013092743

PATIENT
  Age: 34 Year
  Sex: Male
  Weight: 79.37 kg

DRUGS (2)
  1. ZITHROMAX [Suspect]
     Indication: SKIN INFECTION
     Dosage: UNK
     Dates: start: 2001, end: 2001
  2. ZITHROMAX [Suspect]
     Dosage: UNK
     Dates: start: 200211, end: 200211

REACTIONS (4)
  - Myocardial infarction [Unknown]
  - Electrocardiogram QT prolonged [Unknown]
  - Bundle branch block right [Unknown]
  - Skin infection [Unknown]
